FAERS Safety Report 6551574-6 (Version None)
Quarter: 2010Q1

REPORT INFORMATION
  Report Type: 
  Country: None (occurrence: None)
  Receive Date: 20100122
  Receipt Date: 20090303
  Transmission Date: 20100710
  Serious: Yes (Hospitalization)
  Sender: FDA-Public Use
  Company Number: WAES 0903USA00588

PATIENT
  Sex: Male

DRUGS (2)
  1. INVANZ [Suspect]
     Dates: end: 20090303
  2. VANCOMYCIN [Concomitant]

REACTIONS (1)
  - HEPATIC ENZYME INCREASED [None]
